FAERS Safety Report 21835678 (Version 3)
Quarter: 2023Q2

REPORT INFORMATION
  Report Type: Report from Study
  Country: BR (occurrence: BR)
  Receive Date: 20230109
  Receipt Date: 20230628
  Transmission Date: 20230722
  Serious: Yes (Other)
  Sender: FDA-Public Use
  Company Number: BR-JNJFOC-20230111005

PATIENT
  Sex: Female
  Weight: 63 kg

DRUGS (1)
  1. INFLIXIMAB [Suspect]
     Active Substance: INFLIXIMAB
     Indication: Rheumatoid arthritis
     Dosage: LAST APPLICATION WITH THE MEDICATION WAS ON 23-JUN-2022
     Route: 041

REACTIONS (1)
  - Breast cancer [Unknown]
